FAERS Safety Report 7168062-9 (Version None)
Quarter: 2010Q4

REPORT INFORMATION
  Report Type: 
  Country: None (occurrence: None)
  Receive Date: 20101216
  Receipt Date: 20101203
  Transmission Date: 20110411
  Serious: Yes (Other)
  Sender: FDA-Public Use
  Company Number: PHHY2010US70276

PATIENT
  Sex: Male

DRUGS (2)
  1. EXJADE [Suspect]
     Indication: CHRONIC LYMPHOCYTIC LEUKAEMIA
     Dosage: 1250 MG, QD
     Route: 048
  2. EXJADE [Suspect]
     Indication: HYPOGAMMAGLOBULINAEMIA

REACTIONS (7)
  - ARTHRITIS [None]
  - DIARRHOEA [None]
  - EYE PAIN [None]
  - HEADACHE [None]
  - MALAISE [None]
  - SURGERY [None]
  - SWELLING [None]
